FAERS Safety Report 6239410-9 (Version None)
Quarter: 2009Q2

REPORT INFORMATION
  Report Type: 
  Country: None (occurrence: None)
  Receive Date: 20090618
  Receipt Date: 20090618
  Transmission Date: 20091009
  Serious: Yes (Life-Threatening)
  Sender: FDA-Public Use
  Company Number: None

PATIENT
  Age: 60 Year
  Sex: Male
  Weight: 83.9154 kg

DRUGS (3)
  1. ZICAM LIQUID NASAL GEL COLD ZICAM LLC, MATRIX INITIATIVES [Suspect]
     Indication: INFLAMMATION
     Dosage: 1 OR TWO SPRAYS USED TWICE NASAL
     Route: 045
     Dates: start: 20060123, end: 20060223
  2. ZICAM LIQUID NASAL GEL COLD ZICAM LLC, MATRIX INITIATIVES [Suspect]
     Indication: NASOPHARYNGITIS
     Dosage: 1 OR TWO SPRAYS USED TWICE NASAL
     Route: 045
     Dates: start: 20060123, end: 20060223
  3. ZICAM LIQUID NASAL GEL COLD ZICAM LLC, MATRIX INITIATIVES [Suspect]
     Indication: SINUS DISORDER
     Dosage: 1 OR TWO SPRAYS USED TWICE NASAL
     Route: 045
     Dates: start: 20060123, end: 20060223

REACTIONS (4)
  - ANOSMIA [None]
  - CONDITION AGGRAVATED [None]
  - DRUG INEFFECTIVE [None]
  - NASAL CONGESTION [None]
